FAERS Safety Report 6171580-3 (Version None)
Quarter: 2009Q2

REPORT INFORMATION
  Report Type: 
  Country: None (occurrence: None)
  Receive Date: 20090429
  Receipt Date: 20090420
  Transmission Date: 20091009
  Serious: Yes (Hospitalization)
  Sender: FDA-Public Use
  Company Number: FR-ASTRAZENECA-2008CG01443

PATIENT
  Age: 68 Year
  Sex: Female

DRUGS (8)
  1. ARIMIDEX [Suspect]
     Indication: BREAST CANCER FEMALE
     Route: 048
     Dates: start: 20050101, end: 20070101
  2. ARIMIDEX [Suspect]
     Route: 048
     Dates: start: 20070101
  3. ACTONEL [Suspect]
     Route: 048
     Dates: start: 20090301
  4. LEVOTHYROX [Concomitant]
     Indication: HYPOTHYROIDISM
  5. TANAKAN [Concomitant]
  6. RIVOTRIL [Concomitant]
  7. LORAZEPAM [Concomitant]
  8. UVEDOSE [Concomitant]

REACTIONS (3)
  - BONE PAIN [None]
  - SPINAL COLUMN STENOSIS [None]
  - SPINAL COMPRESSION FRACTURE [None]
